FAERS Safety Report 9973799 (Version 1)
Quarter: 2014Q1

REPORT INFORMATION
  Report Type: Spontaneous
  Country: FR (occurrence: FR)
  Receive Date: 20140306
  Receipt Date: 20140306
  Transmission Date: 20141002
  Serious: Yes (Hospitalization, Other)
  Sender: FDA-Public Use
  Company Number: FR-ASTRAZENECA-2014SE14693

PATIENT
  Age: 472 Month
  Sex: Female

DRUGS (5)
  1. XYLOCAINE VISCOUS [Suspect]
     Indication: ENDOSCOPY
     Dosage: 2 TABLESPOONS ONCE
     Route: 065
     Dates: start: 201203, end: 201203
  2. XYLOCAINE VISCOUS [Suspect]
     Indication: ANAL FISSURE
     Dosage: 2 TABLESPOONS ONCE
     Route: 065
     Dates: start: 201203, end: 201203
  3. XYLOCAINE VISCOUS [Suspect]
     Indication: ENDOSCOPY
     Route: 065
     Dates: start: 2013, end: 2013
  4. XYLOCAINE VISCOUS [Suspect]
     Indication: ANAL FISSURE
     Route: 065
     Dates: start: 2013, end: 2013
  5. LYSANXIA [Concomitant]
     Indication: ANXIETY

REACTIONS (29)
  - Anal fissure [Recovered/Resolved]
  - Chest pain [Recovered/Resolved]
  - Vomiting [Recovered/Resolved]
  - Back pain [Recovered/Resolved]
  - Gastrointestinal pain [Recovered/Resolved]
  - Chest discomfort [Recovered/Resolved]
  - Chest pain [Recovered/Resolved]
  - Impaired gastric emptying [Recovered/Resolved]
  - Malaise [Recovered/Resolved]
  - Abdominal pain upper [Recovered/Resolved]
  - Oesophageal spasm [Recovered/Resolved]
  - Dysphagia [Recovered/Resolved]
  - Weight decreased [Recovered/Resolved]
  - Feeding disorder [Recovered/Resolved]
  - Asthenia [Recovered/Resolved]
  - Muscle spasms [Recovered/Resolved]
  - Flatulence [Recovered/Resolved]
  - Pain [Recovered/Resolved]
  - Local swelling [Recovered/Resolved]
  - Serum ferritin decreased [Not Recovered/Not Resolved]
  - Anxiety disorder [Not Recovered/Not Resolved]
  - Depression [Not Recovered/Not Resolved]
  - Weight increased [Not Recovered/Not Resolved]
  - Sleep disorder [Not Recovered/Not Resolved]
  - Gastrointestinal disorder [Not Recovered/Not Resolved]
  - Constipation [Unknown]
  - Erythema [Recovered/Resolved]
  - Dyspnoea [Recovered/Resolved]
  - Off label use [Recovered/Resolved]
